FAERS Safety Report 21943581 (Version 1)
Quarter: 2023Q1

REPORT INFORMATION
  Report Type: Spontaneous
  Country: US (occurrence: US)
  Receive Date: 20230202
  Receipt Date: 20230202
  Transmission Date: 20230417
  Serious: Yes (Death, Hospitalization)
  Sender: FDA-Public Use
  Company Number: US-JNJFOC-20230159447

PATIENT
  Age: 42 Year
  Sex: Male

DRUGS (6)
  1. ACETAMINOPHEN [Suspect]
     Active Substance: ACETAMINOPHEN
     Indication: Suicide attempt
     Route: 065
  2. ACETAMINOPHEN\HYDROCODONE [Suspect]
     Active Substance: ACETAMINOPHEN\HYDROCODONE
     Indication: Suicide attempt
     Route: 065
  3. INSULIN GLARGINE [Suspect]
     Active Substance: INSULIN GLARGINE
     Indication: Suicide attempt
     Route: 065
  4. ALCOHOL [Suspect]
     Active Substance: ALCOHOL
     Indication: Suicide attempt
     Route: 065
  5. LIRAGLUTIDE [Suspect]
     Active Substance: LIRAGLUTIDE
     Indication: Suicide attempt
     Route: 065
  6. LISINOPRIL [Suspect]
     Active Substance: LISINOPRIL
     Indication: Suicide attempt
     Route: 065

REACTIONS (1)
  - Toxicity to various agents [Fatal]
